FAERS Safety Report 4364793-4 (Version None)
Quarter: 2004Q2

REPORT INFORMATION
  Report Type: 
  Country: None (occurrence: None)
  Receive Date: 20040526
  Receipt Date: 20030528
  Transmission Date: 20050107
  Serious: No
  Sender: FDA-Public Use
  Company Number: US-GLAXOSMITHKLINE-A0410774A

PATIENT
  Sex: Female

DRUGS (6)
  1. LOTRONEX [Suspect]
     Dosage: 1TAB SEE DOSAGE TEXT
     Route: 048
  2. PAXIL CR [Suspect]
     Indication: IRRITABLE BOWEL SYNDROME
     Dosage: 12.5MG TWICE PER DAY
     Route: 048
  3. CREON [Concomitant]
  4. LIBRAX [Concomitant]
  5. IMODIUM A-D [Concomitant]
  6. PANCREATIC ENZYME [Concomitant]

REACTIONS (4)
  - CONSTIPATION [None]
  - DRUG INEFFECTIVE [None]
  - OVERDOSE [None]
  - UNEXPECTED THERAPEUTIC DRUG EFFECT [None]
